FAERS Safety Report 23579818 (Version 1)
Quarter: 2024Q1

REPORT INFORMATION
  Report Type: Spontaneous
  Country: US (occurrence: None)
  Receive Date: 20240228
  Receipt Date: 20240228
  Transmission Date: 20240410
  Serious: Yes (Hospitalization)
  Sender: FDA-Public Use
  Company Number: None

PATIENT
  Age: 74 Year
  Sex: Female
  Weight: 57 kg

DRUGS (2)
  1. ERBITUX [Suspect]
     Active Substance: CETUXIMAB
     Indication: Lung adenocarcinoma
     Dosage: OTHER FREQUENCY : Q3WEEKS;?
     Route: 041
     Dates: start: 20230706, end: 20240212
  2. ERBITUX [Suspect]
     Active Substance: CETUXIMAB
     Indication: Lung adenocarcinoma
     Dosage: OTHER FREQUENCY : Q3WEEKS;?
     Route: 041
     Dates: start: 20230706, end: 20240212

REACTIONS (5)
  - Chronic obstructive pulmonary disease [None]
  - Hypervolaemia [None]
  - Hypersensitivity [None]
  - Tachycardia [None]
  - Infusion related reaction [None]

NARRATIVE: CASE EVENT DATE: 20240212
